FAERS Safety Report 18080680 (Version 2)
Quarter: 2021Q2

REPORT INFORMATION
  Report Type: Spontaneous
  Country: CA (occurrence: CA)
  Receive Date: 20200728
  Receipt Date: 20210628
  Transmission Date: 20210717
  Serious: Yes (Other)
  Sender: FDA-Public Use
  Company Number: CA-TEVA-2020-CA-1806099

PATIENT
  Age: 32 Year
  Sex: Male

DRUGS (3)
  1. CLARITHROMYCIN. [Concomitant]
     Active Substance: CLARITHROMYCIN
  2. LANSOPRAZOLE. [Concomitant]
     Active Substance: LANSOPRAZOLE
  3. AMOXICILLIN. [Suspect]
     Active Substance: AMOXICILLIN
     Indication: HELICOBACTER INFECTION
     Route: 048

REACTIONS (8)
  - Ocular discomfort [Unknown]
  - CSF eosinophil count increased [Unknown]
  - CSF white blood cell count increased [Unknown]
  - Meningitis aseptic [Unknown]
  - Photophobia [Unknown]
  - CSF protein increased [Unknown]
  - Vomiting [Unknown]
  - Headache [Unknown]
